FAERS Safety Report 5853467-6 (Version None)
Quarter: 2008Q3

REPORT INFORMATION
  Report Type: 
  Country: None (occurrence: None)
  Receive Date: 20080820
  Receipt Date: 20080811
  Transmission Date: 20090109
  Serious: Yes (Hospitalization, Other)
  Sender: FDA-Public Use
  Company Number: 2008AP001978

PATIENT
  Age: 80 Year
  Sex: Female

DRUGS (8)
  1. CITALOPRAM HYDROBROMIDE [Suspect]
     Indication: ANXIETY
     Dosage: 1O MG; QD; 20 MG; QD
  2. PROPAFENONE HCL [Suspect]
     Indication: ATRIAL FIBRILLATION
     Dosage: 900 MG; 450 MG; QD
  3. DIGOXIN [Concomitant]
  4. ISOSORBIDE DINITRATE [Concomitant]
  5. SPIRONOLACTONE [Concomitant]
  6. SIMVASTATIN [Concomitant]
  7. ACETYLSALICYLIC ACID SRT [Concomitant]
  8. HYDROCHLOROTHIAZIDE [Concomitant]

REACTIONS (15)
  - ANAEMIA [None]
  - ATRIAL FIBRILLATION [None]
  - BLOOD CREATININE INCREASED [None]
  - BRADYCARDIA [None]
  - CHEST DISCOMFORT [None]
  - COGNITIVE DISORDER [None]
  - CONTUSION [None]
  - DELIRIUM [None]
  - DEMENTIA [None]
  - DISTURBANCE IN ATTENTION [None]
  - DIZZINESS [None]
  - DRUG INTERACTION [None]
  - DRUG LEVEL BELOW THERAPEUTIC [None]
  - FALL [None]
  - GLOMERULAR FILTRATION RATE DECREASED [None]
